FAERS Safety Report 24278769 (Version 1)
Quarter: 2024Q3

REPORT INFORMATION
  Report Type: Spontaneous
  Country: US (occurrence: None)
  Receive Date: 20240830
  Receipt Date: 20240830
  Transmission Date: 20241016
  Serious: No
  Sender: Public
  Company Number: None

PATIENT
  Age: 29 Year
  Sex: Female

DRUGS (1)
  1. ZURZUVAE [Suspect]
     Active Substance: ZURANOLONE
     Indication: Perinatal depression
     Dosage: 50 MG AT BEDTIME ORAL
     Route: 048

REACTIONS (7)
  - Therapy cessation [None]
  - Nausea [None]
  - Dizziness [None]
  - Fatigue [None]
  - Somnolence [None]
  - Feeling abnormal [None]
  - Movement disorder [None]

NARRATIVE: CASE EVENT DATE: 20240823
